FAERS Safety Report 11918913 (Version 2)
Quarter: 2016Q3

REPORT INFORMATION
  Report Type: Spontaneous
  Country: US (occurrence: US)
  Receive Date: 20160115
  Receipt Date: 20160907
  Transmission Date: 20161109
  Serious: Yes (Other)
  Sender: FDA-Public Use
  Company Number: US-JNJFOC-20151205454

PATIENT
  Age: 48 Year
  Sex: Male
  Weight: 101.15 kg

DRUGS (3)
  1. LEVAQUIN [Suspect]
     Active Substance: LEVOFLOXACIN
     Indication: PLEURITIC PAIN
     Route: 048
     Dates: start: 200602
  2. LEVAQUIN [Suspect]
     Active Substance: LEVOFLOXACIN
     Indication: PLEURITIC PAIN
     Route: 048
     Dates: start: 20060602, end: 20060626
  3. LEVAQUIN [Suspect]
     Active Substance: LEVOFLOXACIN
     Indication: PLEURITIC PAIN
     Route: 048
     Dates: start: 20060329

REACTIONS (1)
  - Neuropathy peripheral [Not Recovered/Not Resolved]

NARRATIVE: CASE EVENT DATE: 200605
